FAERS Safety Report 17628961 (Version 1)
Quarter: 2020Q2

REPORT INFORMATION
  Report Type: Spontaneous
  Country: US (occurrence: US)
  Receive Date: 20200406
  Receipt Date: 20200406
  Transmission Date: 20200713
  Serious: Yes (Other)
  Sender: FDA-Public Use
  Company Number: US-LUPIN PHARMACEUTICALS INC.-2020-01585

PATIENT
  Age: 83 Year
  Sex: Male

DRUGS (1)
  1. ATORVASTATIN CALCIUM. [Suspect]
     Active Substance: ATORVASTATIN CALCIUM
     Indication: HYPERLIPIDAEMIA
     Dosage: 80 MILLIGRAM, QD, HIGH DOSE
     Route: 065

REACTIONS (4)
  - Muscular weakness [Unknown]
  - Fall [Unknown]
  - Wrist fracture [Unknown]
  - Fatigue [Unknown]
